FAERS Safety Report 10966924 (Version 1)
Quarter: 2015Q1

REPORT INFORMATION
  Report Type: Spontaneous
  Country: US (occurrence: US)
  Receive Date: 20150330
  Receipt Date: 20150330
  Transmission Date: 20150721
  Serious: No
  Sender: FDA-Public Use
  Company Number: US-SHIRE-US201502766

PATIENT
  Sex: Female
  Weight: 58.96 kg

DRUGS (4)
  1. ADDERALL XR [Suspect]
     Active Substance: AMPHETAMINE ASPARTATE\AMPHETAMINE SULFATE\DEXTROAMPHETAMINE SACCHARATE\DEXTROAMPHETAMINE SULFATE
     Indication: ATTENTION DEFICIT/HYPERACTIVITY DISORDER
     Dosage: 60 MG (TWO 30 MG CAPSULES), 1X/DAY:QD (DAILY)
     Route: 048
     Dates: start: 2014
  2. LEXAPRO [Concomitant]
     Active Substance: ESCITALOPRAM OXALATE
     Indication: ANXIETY
     Dosage: 20 MG, 1X/DAY:QD (IN PM)
     Route: 048
     Dates: start: 2014
  3. LAMICTAL [Concomitant]
     Active Substance: LAMOTRIGINE
     Indication: MOOD ALTERED
     Dosage: 300 MG, 1X/DAY:QD (IN PM)
     Route: 048
     Dates: start: 2014
  4. DEPAKOTE [Concomitant]
     Active Substance: DIVALPROEX SODIUM
     Indication: MOOD ALTERED
     Dosage: UNK, 2X/DAY:BID (ONE TAB IN AM, TWO TABS IN PM)
     Route: 048
     Dates: start: 201501

REACTIONS (3)
  - Product quality issue [Not Recovered/Not Resolved]
  - Prescribed overdose [Not Recovered/Not Resolved]
  - No adverse event [Not Recovered/Not Resolved]

NARRATIVE: CASE EVENT DATE: 2014
